FAERS Safety Report 8436036-3 (Version None)
Quarter: 2012Q2

REPORT INFORMATION
  Report Type: 
  Country: None (occurrence: None)
  Receive Date: 20120608
  Receipt Date: 20120529
  Transmission Date: 20120825
  Serious: Yes (Hospitalization)
  Sender: FDA-Public Use
  Company Number: KAD201203-000188

PATIENT
  Age: 57 Year
  Sex: Female

DRUGS (7)
  1. PHENERGAN (PROMETHAZINE HYDROCHLORIDE, DIBROMPROPAMIDINE ISETIONATE) [Concomitant]
  2. ESCITALOPRAM OXALATE [Concomitant]
  3. ABT-267 (ABT-267) [Suspect]
     Indication: HEPATITIS C
     Dosage: TABLETS, ONCE DAILY (84 DAYS)
     Dates: start: 20110705, end: 20110927
  4. PEGINTERFERON ALFA-2A [Suspect]
     Indication: HEPATITIS C
     Dosage: 180 MCG, ONCE WEEKLY, SUBCUTANEOUS
     Route: 058
     Dates: start: 20110705
  5. RIBAVIRIN [Suspect]
     Indication: HEPATITIS C
     Dosage: 1200 MG (600 MG, TWICE A DAY), TABLETS, ORAL
     Route: 048
     Dates: start: 20110705
  6. FLUTICASONE PROPIONATE [Concomitant]
  7. KLIOGEST (ESTRADIOL, NORETHISTERONE ACETATE) [Concomitant]

REACTIONS (8)
  - NIGHT SWEATS [None]
  - DEHYDRATION [None]
  - OEDEMA PERIPHERAL [None]
  - MALNUTRITION [None]
  - DEPRESSION [None]
  - MUSCULAR WEAKNESS [None]
  - ARTHRALGIA [None]
  - SKIN DISCOLOURATION [None]
